FAERS Safety Report 15603909 (Version 1)
Quarter: 2018Q4

REPORT INFORMATION
  Report Type: Report from Study
  Country: JP (occurrence: JP)
  Receive Date: 20181109
  Receipt Date: 20181109
  Transmission Date: 20190205
  Serious: No
  Sender: FDA-Public Use
  Company Number: JP-ALLERGAN-1852161US

PATIENT
  Age: 36 Year
  Sex: Female
  Weight: 79 kg

DRUGS (11)
  1. ASENAPINE MALEATE UNK [Suspect]
     Active Substance: ASENAPINE MALEATE
     Dosage: 5 MG, QPM
     Route: 060
     Dates: start: 20180830, end: 20180831
  2. BROTIZOLAM [Concomitant]
     Active Substance: BROTIZOLAM
     Dosage: UNK
  3. BLONANSERIN [Concomitant]
     Active Substance: BLONANSERIN
     Dosage: UNK
     Dates: start: 20181006
  4. PALIPERIDONE. [Concomitant]
     Active Substance: PALIPERIDONE
     Dosage: UNK
     Dates: end: 20180825
  5. RISPERIDONE. [Concomitant]
     Active Substance: RISPERIDONE
     Dosage: UNK
     Dates: end: 20180907
  6. VALPROATE SODIUM. [Concomitant]
     Active Substance: VALPROATE SODIUM
     Dosage: UNK
     Dates: end: 20180902
  7. ASENAPINE MALEATE UNK [Suspect]
     Active Substance: ASENAPINE MALEATE
     Indication: SCHIZOPHRENIA
     Dosage: 5 MG, QHS
     Route: 060
     Dates: start: 20181006, end: 20181013
  8. ASENAPINE MALEATE UNK [Suspect]
     Active Substance: ASENAPINE MALEATE
     Dosage: 5 MG, BID (MORNING AND BEDTIME)
     Route: 060
     Dates: start: 20180901, end: 20180909
  9. CLONAZEPAM. [Concomitant]
     Active Substance: CLONAZEPAM
     Dosage: UNK
     Dates: start: 20180830, end: 20181003
  10. ASENAPINE MALEATE UNK [Suspect]
     Active Substance: ASENAPINE MALEATE
     Dosage: 10 MG, BID (MORNING AND EVENING)
     Route: 060
     Dates: start: 20180910, end: 20181005
  11. LORAZEPAM. [Concomitant]
     Active Substance: LORAZEPAM
     Dosage: UNK
     Dates: end: 20180827

REACTIONS (4)
  - Akathisia [Recovered/Resolved]
  - Dyspnoea [Recovered/Resolved]
  - Tic [Recovered/Resolved]
  - Tremor [Recovered/Resolved]

NARRATIVE: CASE EVENT DATE: 20180913
